FAERS Safety Report 6759567-0 (Version None)
Quarter: 2010Q2

REPORT INFORMATION
  Report Type: 
  Country: None (occurrence: None)
  Receive Date: 20100607
  Receipt Date: 20100603
  Transmission Date: 20101027
  Serious: Yes (Death)
  Sender: FDA-Public Use
  Company Number: JP-BRISTOL-MYERS SQUIBB COMPANY-15134505

PATIENT
  Age: 64 Year
  Sex: Male
  Weight: 52 kg

DRUGS (18)
  1. PARAPLATIN [Suspect]
     Indication: CHEMOTHERAPY
     Route: 042
     Dates: start: 20100428
  2. PACLITAXEL [Suspect]
     Indication: CHEMOTHERAPY
     Route: 042
     Dates: start: 20100428
  3. AVASTIN [Suspect]
     Indication: CHEMOTHERAPY
     Route: 042
     Dates: start: 20100428
  4. FIRSTCIN [Concomitant]
     Route: 042
     Dates: start: 20100428, end: 20100430
  5. CLINDAMYCIN [Concomitant]
     Route: 042
     Dates: start: 20100501, end: 20100507
  6. MEROPENEM [Concomitant]
     Route: 042
     Dates: start: 20100501, end: 20100507
  7. CEFTAZIDIME [Concomitant]
     Route: 042
     Dates: start: 20100509, end: 20100510
  8. SOL MELCORT [Concomitant]
     Route: 042
     Dates: start: 20100501, end: 20100503
  9. LASIX [Concomitant]
  10. FAMOTIDINE [Concomitant]
  11. PREDONINE [Concomitant]
  12. DUROTEP [Concomitant]
     Dosage: DUROTEP MT PATCH
  13. TULOBUTEROL [Concomitant]
     Dosage: TULOBUTEROL TAPE
  14. LOXONIN [Concomitant]
  15. CLEANAL [Concomitant]
  16. MUCOSTA [Concomitant]
  17. MAGMITT [Concomitant]
  18. PROCHLORPERAZINE [Concomitant]

REACTIONS (1)
  - RENAL IMPAIRMENT [None]
